FAERS Safety Report 10428691 (Version 1)
Quarter: 2014Q3

REPORT INFORMATION
  Report Type: Spontaneous
  Country: CA (occurrence: None)
  Receive Date: 20140902
  Receipt Date: 20140902
  Transmission Date: 20150326
  Serious: Yes (Death)
  Sender: FDA-Public Use
  Company Number: BD-2014-0044

PATIENT
  Age: 25 Year

DRUGS (13)
  1. PROTHIONAMIDE [Concomitant]
     Active Substance: PROTIONAMIDE
  2. CYCLOSERINE. [Concomitant]
     Active Substance: CYCLOSERINE
  3. AMIKACIN (AMIKACIN) [Concomitant]
     Active Substance: AMIKACIN
  4. DARUNAVIR W/RITONAVIR (DARUNAVIR, RITONAVIR) [Concomitant]
  5. CLOFAZIMINE [Concomitant]
     Active Substance: CLOFAZIMINE
  6. VALGANCICLOVIR [Concomitant]
     Active Substance: VALGANCICLOVIR
  7. ENOXAPARIN [Concomitant]
     Active Substance: ENOXAPARIN
  8. FLUCONAZOLE. [Concomitant]
     Active Substance: FLUCONAZOLE
  9. ONDANSETRON (ONDANSETRON) UNKNOWN [Suspect]
     Active Substance: ONDANSETRON
     Indication: NAUSEA
  10. ETHAMBUTOL [Concomitant]
     Active Substance: ETHAMBUTOL HYDROCHLORIDE
  11. MOXIFLOXACIN [Concomitant]
     Active Substance: MOXIFLOXACIN
  12. PYRAZINAMIDE. [Concomitant]
     Active Substance: PYRAZINAMIDE
  13. LINEZOLID. [Concomitant]
     Active Substance: LINEZOLID

REACTIONS (1)
  - Arrhythmia [None]
